FAERS Safety Report 4753409-0 (Version None)
Quarter: 2005Q3

REPORT INFORMATION
  Report Type: 
  Country: None (occurrence: None)
  Receive Date: 20050824
  Receipt Date: 20050819
  Transmission Date: 20060218
  Serious: Yes (Other)
  Sender: FDA-Public Use
  Company Number: 2005US001103

PATIENT
  Age: 59 Year
  Sex: Female
  Weight: 105.2 kg

DRUGS (4)
  1. ADENOSCAN [Suspect]
     Indication: SCAN MYOCARDIAL PERFUSION
     Dosage: 59.10 MG, TOTAL DOSE, PARENTERAL
     Route: 051
     Dates: start: 20050811, end: 20050811
  2. CARDIOLITE [Concomitant]
  3. NEXIUM [Concomitant]
  4. SYNTHROID [Concomitant]

REACTIONS (13)
  - CHEST PAIN [None]
  - CHILLS [None]
  - DIARRHOEA [None]
  - DYSPNOEA [None]
  - HYPERHIDROSIS [None]
  - INFLUENZA [None]
  - INFLUENZA LIKE ILLNESS [None]
  - NAUSEA [None]
  - POST PROCEDURAL COMPLICATION [None]
  - PROCEDURAL COMPLICATION [None]
  - SENSATION OF HEAVINESS [None]
  - VIRAL INFECTION [None]
  - VOMITING [None]
